FAERS Safety Report 4297493-X (Version None)
Quarter: 2004Q1

REPORT INFORMATION
  Report Type: 
  Country: None (occurrence: None)
  Receive Date: 20040218
  Receipt Date: 20040206
  Transmission Date: 20041129
  Serious: Yes (Other)
  Sender: FDA-Public Use
  Company Number: GB-GLAXOSMITHKLINE-B0322538A

PATIENT
  Age: 67 Year
  Sex: Male
  Weight: 70 kg

DRUGS (3)
  1. AMOXICILLIN [Suspect]
     Indication: PROPHYLAXIS
     Dosage: 3G UNKNOWN
     Route: 048
  2. ASPIRIN [Concomitant]
     Dosage: 75MG PER DAY
     Route: 048
  3. GAVISCON [Concomitant]
     Route: 048

REACTIONS (1)
  - KIDNEY INFECTION [None]
